FAERS Safety Report 19584859 (Version 4)
Quarter: 2021Q3

REPORT INFORMATION
  Report Type: Report from Study
  Country: JP (occurrence: JP)
  Receive Date: 20210720
  Receipt Date: 20210913
  Transmission Date: 20211014
  Serious: Yes (Death, Hospitalization, Other)
  Sender: FDA-Public Use
  Company Number: JP-ASTRAZENECA-2021A629896

PATIENT
  Age: 71 Year
  Sex: Female
  Weight: 40 kg

DRUGS (10)
  1. ARIMIDEX [Suspect]
     Active Substance: ANASTROZOLE
     Indication: BREAST CANCER
     Route: 048
     Dates: start: 20160122, end: 20190906
  2. EPIRUBICIN HYDROCHLORIDE. [Concomitant]
     Active Substance: EPIRUBICIN HYDROCHLORIDE
     Indication: BREAST CANCER
     Route: 065
  3. FASLODEX [Suspect]
     Active Substance: FULVESTRANT
     Indication: BREAST CANCER
     Route: 030
     Dates: start: 20190912, end: 20191107
  4. FLUOROURACIL. [Concomitant]
     Active Substance: FLUOROURACIL
     Indication: BREAST CANCER
     Route: 065
  5. CYCLOPHOSPHAMIDE HYDRATE [Concomitant]
     Active Substance: CYCLOPHOSPHAMIDE
     Indication: BREAST CANCER
     Route: 065
  6. LYNPARZA [Suspect]
     Active Substance: OLAPARIB
     Indication: BREAST CANCER
     Dosage: 600 MG 2 SEPARATE DOSES DAILY
     Route: 048
     Dates: start: 20200526, end: 20200817
  7. DOCETAXEL. [Concomitant]
     Active Substance: DOCETAXEL
     Indication: BREAST CANCER
     Route: 065
  8. TAXOL [Concomitant]
     Active Substance: PACLITAXEL
     Indication: BREAST CANCER
     Dosage: 420 MG 2 SEPARATE DOSES EVERY FOUR WEEKS
     Route: 042
     Dates: start: 20200826, end: 20200923
  9. AVASTIN [Concomitant]
     Active Substance: BEVACIZUMAB
     Indication: BREAST CANCER
     Dosage: 420 MG 2 SEPARATE DOSES EVERY FOUR WEEKS
     Route: 042
     Dates: start: 20200826, end: 20200923
  10. HALAVEN [Concomitant]
     Active Substance: ERIBULIN MESYLATE
     Indication: BREAST CANCER
     Dosage: 1.8 MG 2 SEPARATE DOSES EVERY THREE WEEKS
     Route: 042
     Dates: start: 20191204, end: 20200428

REACTIONS (9)
  - Malignant neoplasm progression [Fatal]
  - Drug ineffective [Unknown]
  - Metastases to bone [Unknown]
  - Decreased appetite [Unknown]
  - Nausea [Recovering/Resolving]
  - Metastases to lymph nodes [Unknown]
  - Discomfort [Unknown]
  - Malaise [Unknown]
  - Pancytopenia [Unknown]

NARRATIVE: CASE EVENT DATE: 20190906
